FAERS Safety Report 4813496-8 (Version None)
Quarter: 2005Q4

REPORT INFORMATION
  Report Type: 
  Country: None (occurrence: None)
  Receive Date: 20051028
  Receipt Date: 20050217
  Transmission Date: 20060501
  Serious: No
  Sender: FDA-Public Use
  Company Number: US-GLAXOSMITHKLINE-A0546026A

PATIENT
  Age: 49 Year
  Sex: Female
  Weight: 136.4 kg

DRUGS (5)
  1. ADVAIR DISKUS 100/50 [Suspect]
     Indication: ASTHMA
     Route: 055
     Dates: start: 20040623, end: 20050103
  2. ALLEGRA [Concomitant]
  3. ZESTRIL [Concomitant]
  4. PREDNISONE [Concomitant]
  5. FLONASE [Concomitant]

REACTIONS (1)
  - PANIC ATTACK [None]
